FAERS Safety Report 6049151-9 (Version None)
Quarter: 2009Q1

REPORT INFORMATION
  Report Type: 
  Country: None (occurrence: None)
  Receive Date: 20090123
  Receipt Date: 20090112
  Transmission Date: 20090719
  Serious: Yes (Hospitalization, Other)
  Sender: FDA-Public Use
  Company Number: US-ELI_LILLY_AND_COMPANY-US200811002559

PATIENT
  Sex: Female
  Weight: 51 kg

DRUGS (4)
  1. FORTEO [Suspect]
     Dosage: UNK, UNK
     Dates: end: 20081114
  2. PLAVIX [Concomitant]
  3. ASPIRIN [Concomitant]
  4. LIPITOR [Concomitant]

REACTIONS (4)
  - ANGINA UNSTABLE [None]
  - ARTHRALGIA [None]
  - CORONARY ARTERY OCCLUSION [None]
  - INJECTION SITE PAIN [None]
